FAERS Safety Report 22339936 (Version 1)
Quarter: 2023Q2

REPORT INFORMATION
  Report Type: Spontaneous
  Country: US (occurrence: US)
  Receive Date: 20230518
  Receipt Date: 20230518
  Transmission Date: 20230721
  Serious: No
  Sender: FDA-Public Use
  Company Number: US-SA-SAC20230516001289

PATIENT
  Sex: Female
  Weight: 47.62 kg

DRUGS (3)
  1. DUPIXENT [Suspect]
     Active Substance: DUPILUMAB
     Indication: Asthma
     Dosage: 300 MG, QOW
     Route: 058
  2. BREZTRI [Suspect]
     Active Substance: BUDESONIDE\FORMOTEROL\GLYCOPYRROLATE
     Dosage: UNK
  3. FASENRA [Concomitant]
     Active Substance: BENRALIZUMAB
     Dosage: UNK

REACTIONS (2)
  - Muscle spasms [Unknown]
  - Abdominal pain [Unknown]
